FAERS Safety Report 14952969 (Version 1)
Quarter: 2018Q2

REPORT INFORMATION
  Report Type: Spontaneous
  Country: JP (occurrence: JP)
  Receive Date: 20180530
  Receipt Date: 20180530
  Transmission Date: 20180711
  Serious: Yes (Other)
  Sender: FDA-Public Use
  Company Number: JP-ROCHE-2130884

PATIENT
  Age: 61 Year
  Sex: Female

DRUGS (1)
  1. BONVIVA [Suspect]
     Active Substance: IBANDRONATE SODIUM
     Indication: OSTEOPOROSIS
     Route: 042
     Dates: start: 20180417, end: 20180417

REACTIONS (3)
  - Back pain [Unknown]
  - Pain in jaw [Unknown]
  - Chest pain [Unknown]

NARRATIVE: CASE EVENT DATE: 20180417
